FAERS Safety Report 6565278-7 (Version None)
Quarter: 2010Q1

REPORT INFORMATION
  Report Type: 
  Country: None (occurrence: None)
  Receive Date: 20100201
  Receipt Date: 20100127
  Transmission Date: 20100710
  Serious: Yes (Disabling, Other)
  Sender: FDA-Public Use
  Company Number: CHPA2010US01970

PATIENT
  Age: 82 Year
  Sex: Male

DRUGS (16)
  1. SLOW FE IRON TABLETS (NCH) [Suspect]
     Indication: MINERAL SUPPLEMENTATION
     Dosage: UNK, UNK
     Route: 048
  2. REQUIP [Concomitant]
     Dosage: UNK, UNK
     Route: 048
  3. ROSUVASTATIN [Concomitant]
     Dosage: 5 MG, QD
     Route: 048
  4. ATENOLOL [Concomitant]
     Dosage: 25 MG, QD
     Route: 048
  5. LISINOPRIL [Concomitant]
     Dosage: 25 MG, QD
     Route: 048
  6. METRONIDAZOLE [Concomitant]
     Dosage: 250 MG, BID
     Route: 048
  7. FLUOXETINE [Concomitant]
     Dosage: 20 MG, QD
     Route: 048
  8. MESALAMINE [Concomitant]
     Dosage: 1500 MG, BID
     Route: 048
  9. TERAZOSIN HYDROCHLORIDE [Concomitant]
     Dosage: 2 MG, QD
     Route: 048
  10. GLIMEPIRIDE [Concomitant]
     Dosage: 2 MG, QD
     Route: 048
  11. PYRIDOXIN [Concomitant]
     Dosage: 5 M, QD
     Route: 048
  12. FOLIC ACID [Concomitant]
     Dosage: 1 MG, QD
     Route: 048
  13. VITAMIN B-12 [Concomitant]
     Dosage: 25 MG, QD
     Route: 048
  14. CENTRUM SILVER [Concomitant]
     Dosage: 1 DF, QD
     Route: 048
  15. SAW PALMETTO [Concomitant]
     Dosage: 1 DF, QD
     Route: 048
  16. BABY ASPIRIN [Concomitant]
     Dosage: 81 MG, QD
     Route: 048

REACTIONS (4)
  - DISABILITY [None]
  - INTENTIONAL DRUG MISUSE [None]
  - PARKINSON'S DISEASE [None]
  - SKIN LACERATION [None]
